FAERS Safety Report 13552878 (Version 1)
Quarter: 2017Q2

REPORT INFORMATION
  Report Type: Spontaneous
  Country: US (occurrence: US)
  Receive Date: 20170516
  Receipt Date: 20170516
  Transmission Date: 20170830
  Serious: No
  Sender: FDA-Public Use
  Company Number: None

PATIENT
  Sex: Male

DRUGS (1)
  1. HUMIRA [Suspect]
     Active Substance: ADALIMUMAB
     Indication: COLITIS ULCERATIVE
     Route: 058
     Dates: start: 20170302

REACTIONS (7)
  - Peripheral swelling [None]
  - Alopecia [None]
  - Joint swelling [None]
  - Gingival bleeding [None]
  - Drug ineffective [None]
  - Therapy change [None]
  - Haemoglobin decreased [None]
